FAERS Safety Report 7472772-3 (Version None)
Quarter: 2011Q2

REPORT INFORMATION
  Report Type: 
  Country: None (occurrence: None)
  Receive Date: 20110502
  Receipt Date: 20110421
  Transmission Date: 20111010
  Serious: Yes (Hospitalization, Other)
  Sender: FDA-Public Use
  Company Number: 2007-157966-NL

PATIENT
  Age: 42 Year
  Sex: Female
  Weight: 81.1939 kg

DRUGS (1)
  1. NUVARING [Suspect]
     Indication: CONTRACEPTION
     Dosage: 1 DF; ;VAG
     Route: 067
     Dates: start: 20040601, end: 20070401

REACTIONS (5)
  - MUSCLE TWITCHING [None]
  - CEREBROVASCULAR ACCIDENT [None]
  - BREAST MASS [None]
  - HYPOAESTHESIA [None]
  - TRANSIENT ISCHAEMIC ATTACK [None]
